FAERS Safety Report 9521646 (Version 1)
Quarter: 2013Q3

REPORT INFORMATION
  Report Type: Spontaneous
  Country: US (occurrence: US)
  Receive Date: 20130913
  Receipt Date: 20130913
  Transmission Date: 20140515
  Serious: Yes (Death)
  Sender: FDA-Public Use
  Company Number: US-ASTELLAS-2013US009485

PATIENT
  Sex: Female

DRUGS (2)
  1. TARCEVA [Suspect]
     Indication: BRONCHIAL CARCINOMA
     Dosage: 100 MG, UID/QD
     Route: 065
     Dates: start: 20130718
  2. TARCEVA [Suspect]
     Indication: LUNG NEOPLASM MALIGNANT

REACTIONS (2)
  - Incorrect dose administered [Unknown]
  - Death [Fatal]
